FAERS Safety Report 10705408 (Version 1)
Quarter: 2015Q1

REPORT INFORMATION
  Report Type: Spontaneous
  Country: US (occurrence: US)
  Receive Date: 20150112
  Receipt Date: 20150112
  Transmission Date: 20150721
  Serious: No
  Sender: FDA-Public Use
  Company Number: US-GLAXOSMITHKLINE-A1059259A

PATIENT

DRUGS (6)
  1. PROMACTA [Suspect]
     Active Substance: ELTROMBOPAG OLAMINE
     Indication: PLATELET COUNT DECREASED
     Route: 048
     Dates: start: 20140101, end: 20140128
  2. BISOPROLOL [Concomitant]
     Active Substance: BISOPROLOL
  3. ISOSORBIDE MONONITRATE. [Concomitant]
     Active Substance: ISOSORBIDE MONONITRATE
  4. TOPIRAMATE. [Concomitant]
     Active Substance: TOPIRAMATE
  5. LYRICA [Concomitant]
     Active Substance: PREGABALIN
  6. VITAMIN D [Concomitant]
     Active Substance: CHOLECALCIFEROL

REACTIONS (5)
  - Chest pain [Recovering/Resolving]
  - Influenza like illness [Recovering/Resolving]
  - Nasal congestion [Recovering/Resolving]
  - Myalgia [Recovering/Resolving]
  - Ill-defined disorder [Recovering/Resolving]
